FAERS Safety Report 4897721-3 (Version None)
Quarter: 2006Q1

REPORT INFORMATION
  Report Type: 
  Country: None (occurrence: None)
  Receive Date: 20060201
  Receipt Date: 20051116
  Transmission Date: 20060701
  Serious: Yes (Hospitalization)
  Sender: FDA-Public Use
  Company Number: US-BOEHRINGER INGELHEIM PHARMACEUTICALS, INC.-2005-BP-20333BP

PATIENT
  Age: 56 Year
  Sex: Male

DRUGS (6)
  1. SPIRIVA [Suspect]
     Indication: CHRONIC OBSTRUCTIVE PULMONARY DISEASE
     Route: 055
     Dates: start: 20050701
  2. CARDIZEM [Suspect]
     Dates: end: 20050801
  3. TOPROL [Suspect]
     Dates: end: 20050801
  4. DIGOXIN [Concomitant]
     Dates: end: 20050801
  5. STEROIDS [Concomitant]
     Indication: PNEUMONIA
     Dates: end: 20051001
  6. ANTIBIOTICS [Concomitant]
     Indication: PNEUMONIA
     Dates: end: 20050901

REACTIONS (4)
  - JOINT SWELLING [None]
  - OEDEMA PERIPHERAL [None]
  - OXYGEN SATURATION DECREASED [None]
  - PNEUMONIA [None]
